FAERS Safety Report 9049810 (Version 1)
Quarter: 2013Q1

REPORT INFORMATION
  Report Type: Spontaneous
  Country: US (occurrence: US)
  Receive Date: 20130205
  Receipt Date: 20130205
  Transmission Date: 20140127
  Serious: Yes (Other)
  Sender: FDA-Public Use
  Company Number: US-BAYER-2013-012241

PATIENT
  Age: 39 Year
  Sex: Female

DRUGS (7)
  1. YAZ [Suspect]
     Indication: MENSTRUAL CYCLE MANAGEMENT
  2. VERAMYST [Concomitant]
  3. ZYRTEC [Concomitant]
  4. CALCIUM [Concomitant]
  5. IRON [Concomitant]
  6. VITAMIN B12 [Concomitant]
  7. MULTIVITAMIN [Concomitant]

REACTIONS (2)
  - Deep vein thrombosis [None]
  - Thrombophlebitis superficial [None]
